FAERS Safety Report 5345032-4 (Version None)
Quarter: 2007Q2

REPORT INFORMATION
  Report Type: 
  Country: None (occurrence: None)
  Receive Date: 20070425
  Receipt Date: 20060906
  Transmission Date: 20071010
  Serious: Yes (Hospitalization)
  Sender: FDA-Public Use
  Company Number: 2006-BP-07960BP

PATIENT
  Age: 75 Year
  Sex: Male

DRUGS (3)
  1. FLOMAX [Suspect]
     Indication: BENIGN PROSTATIC HYPERPLASIA
     Dosage: 0.4 MG (0.4 MG,1 IN 1 D),PO
     Route: 048
     Dates: start: 20040101
  2. AVODART [Suspect]
  3. VERAPAMIL [Concomitant]

REACTIONS (5)
  - CHEST PAIN [None]
  - CONSTIPATION [None]
  - DIZZINESS [None]
  - NASAL CONGESTION [None]
  - NOCTURIA [None]
